FAERS Safety Report 7668376-X (Version None)
Quarter: 2011Q3

REPORT INFORMATION
  Report Type: 
  Country: None (occurrence: None)
  Receive Date: 20110808
  Receipt Date: 20110729
  Transmission Date: 20111222
  Serious: Yes (Hospitalization)
  Sender: FDA-Public Use
  Company Number: FR-PFIZER INC-2011175943

PATIENT
  Age: 5 Year
  Sex: Male

DRUGS (1)
  1. SOMATROPIN RDNA [Suspect]
     Indication: PRADER-WILLI SYNDROME
     Dosage: UNK
     Dates: start: 20030306

REACTIONS (3)
  - BACK PAIN [None]
  - PAPILLOEDEMA [None]
  - MUSCULOSKELETAL STIFFNESS [None]
